FAERS Safety Report 5231886-9 (Version None)
Quarter: 2007Q1

REPORT INFORMATION
  Report Type: 
  Country: None (occurrence: None)
  Receive Date: 20070206
  Receipt Date: 20070122
  Transmission Date: 20070707
  Serious: Yes (Other)
  Sender: FDA-Public Use
  Company Number: CA-PFIZER INC-2007005832

PATIENT
  Sex: Female

DRUGS (1)
  1. SUTENT [Suspect]
     Indication: RENAL CELL CARCINOMA STAGE UNSPECIFIED
     Route: 048

REACTIONS (8)
  - ABDOMINAL PAIN UPPER [None]
  - ARTERITIS [None]
  - FATIGUE [None]
  - FEELING COLD [None]
  - HAEMATOCHEZIA [None]
  - MYALGIA [None]
  - ORAL PAIN [None]
  - PRURITUS [None]
